FAERS Safety Report 12930330 (Version 1)
Quarter: 2016Q4

REPORT INFORMATION
  Report Type: Report from Study
  Country: BR (occurrence: BR)
  Receive Date: 20161110
  Receipt Date: 20161110
  Transmission Date: 20170207
  Serious: Yes (Hospitalization, Other)
  Sender: FDA-Public Use
  Company Number: PHHY2016BR153806

PATIENT
  Sex: Female
  Weight: 77 kg

DRUGS (2)
  1. ONBREZ BREEZHALER [Suspect]
     Active Substance: INDACATEROL
     Indication: PULMONARY EMBOLISM
  2. ONBREZ BREEZHALER [Suspect]
     Active Substance: INDACATEROL
     Indication: THROMBOSIS
     Dosage: 150 UG, QD
     Route: 055
     Dates: start: 201103

REACTIONS (4)
  - Thrombosis [Recovering/Resolving]
  - Product use issue [Unknown]
  - Umbilical hernia [Not Recovered/Not Resolved]
  - Pulmonary embolism [Recovering/Resolving]
